FAERS Safety Report 22308853 (Version 1)
Quarter: 2023Q2

REPORT INFORMATION
  Report Type: Spontaneous
  Country: US (occurrence: None)
  Receive Date: 20230510
  Receipt Date: 20230510
  Transmission Date: 20230721
  Serious: Yes (Hospitalization)
  Sender: FDA-Public Use
  Company Number: None

PATIENT
  Age: 58 Year
  Sex: Male
  Weight: 61.69 kg

DRUGS (11)
  1. CAPECITABINE [Suspect]
     Active Substance: CAPECITABINE
     Indication: Pancreatic carcinoma
     Dosage: 1000MG TWICE DAILY ORAL
     Dates: start: 202303
  2. ATORVASTIN [Concomitant]
  3. HUMALOG [Concomitant]
     Active Substance: INSULIN LISPRO
  4. HYDROMORPHONE [Concomitant]
     Active Substance: HYDROMORPHONE
  5. METOPROLOL [Concomitant]
     Active Substance: METOPROLOL
  6. MORPHINE [Concomitant]
     Active Substance: MORPHINE
  7. ONDANSETRON [Concomitant]
     Active Substance: ONDANSETRON
  8. OXYCODONE [Concomitant]
     Active Substance: OXYCODONE
  9. OZEMPIC [Concomitant]
     Active Substance: SEMAGLUTIDE
  10. TACROLIMUS [Concomitant]
  11. TYLENOL [Concomitant]
     Active Substance: ACETAMINOPHEN
     Indication: Pancreatic carcinoma
     Dosage: FREQUENCY : TWICE A DAY;?
     Route: 048
     Dates: start: 202303

REACTIONS (2)
  - Blood pressure measurement [None]
  - Pyrexia [None]
